FAERS Safety Report 12468855 (Version 2)
Quarter: 2016Q3

REPORT INFORMATION
  Report Type: Spontaneous
  Country: IN (occurrence: IN)
  Receive Date: 20160615
  Receipt Date: 20160720
  Transmission Date: 20161109
  Serious: Yes (Other)
  Sender: FDA-Public Use
  Company Number: IN-MYLANLABS-2016M1024782

PATIENT

DRUGS (3)
  1. ALPRAZOLAM. [Suspect]
     Active Substance: ALPRAZOLAM
     Indication: ANXIETY
     Dosage: 0.5 MG/DAY, MANY TABLETS TAKEN TOGETHER (UPTO 50 TABLETS)
     Route: 065
  2. ALPRAZOLAM. [Suspect]
     Active Substance: ALPRAZOLAM
     Indication: SLEEP DISORDER
     Dosage: 0.5 MG/DAY
     Route: 065
     Dates: start: 200709
  3. ALPRAZOLAM. [Suspect]
     Active Substance: ALPRAZOLAM
     Dosage: 0.5 MG/DAY
     Route: 065
     Dates: end: 201509

REACTIONS (4)
  - Drug withdrawal convulsions [Unknown]
  - Intentional overdose [Unknown]
  - Intentional product misuse [Unknown]
  - Drug dependence [Unknown]

NARRATIVE: CASE EVENT DATE: 200803
